FAERS Safety Report 11986781 (Version 1)
Quarter: 2016Q1

REPORT INFORMATION
  Report Type: Spontaneous
  Country: US (occurrence: US)
  Receive Date: 20160202
  Receipt Date: 20160202
  Transmission Date: 20160526
  Serious: No
  Sender: FDA-Public Use
  Company Number: US-UCBSA-2014014471

PATIENT

DRUGS (5)
  1. KEPPRA [Suspect]
     Active Substance: LEVETIRACETAM
     Indication: EPILEPSY
     Dosage: 500 MG DAILY
  2. KEPPRA [Suspect]
     Active Substance: LEVETIRACETAM
     Dosage: 1500 WITH UNKNOWN UNIT
  3. KEPPRA [Suspect]
     Active Substance: LEVETIRACETAM
     Dosage: 1000 MG A DAY
  4. KEPPRA [Suspect]
     Active Substance: LEVETIRACETAM
     Dosage: 2000 MG A DAY
  5. KEPPRA [Suspect]
     Active Substance: LEVETIRACETAM
     Dosage: 2500MG

REACTIONS (8)
  - Depression [Unknown]
  - Fatigue [Unknown]
  - Partial seizures [Unknown]
  - Somnolence [Unknown]
  - Abnormal behaviour [Unknown]
  - Muscular weakness [Unknown]
  - Fear of falling [Unknown]
  - Tinnitus [Unknown]
